FAERS Safety Report 11349724 (Version 1)
Quarter: 2015Q3

REPORT INFORMATION
  Report Type: Spontaneous
  Country: US (occurrence: US)
  Receive Date: 20150807
  Receipt Date: 20150807
  Transmission Date: 20151125
  Serious: Yes (Other)
  Sender: FDA-Public Use
  Company Number: PHHY2015US094681

PATIENT
  Age: 2 Year
  Sex: Female

DRUGS (2)
  1. CICLOSPORIN [Suspect]
     Active Substance: CYCLOSPORINE
     Indication: PROPHYLAXIS AGAINST GRAFT VERSUS HOST DISEASE
     Route: 065
  2. MYCOPHENOLATE MOFETIL. [Suspect]
     Active Substance: MYCOPHENOLATE MOFETIL
     Indication: PROPHYLAXIS AGAINST GRAFT VERSUS HOST DISEASE
     Dosage: 15 MG/KG, TID
     Route: 065

REACTIONS (11)
  - Cytomegalovirus viraemia [Unknown]
  - Pericardial effusion [Recovered/Resolved]
  - Serositis [Recovered/Resolved]
  - Sinusitis bacterial [Unknown]
  - Chronic graft versus host disease in intestine [Recovered/Resolved]
  - Acute graft versus host disease in skin [Recovered/Resolved]
  - Chronic graft versus host disease [Recovered/Resolved]
  - Cardiac tamponade [Recovered/Resolved]
  - Stomatitis [Unknown]
  - Acute graft versus host disease in intestine [Recovered/Resolved]
  - Bronchopulmonary aspergillosis [Unknown]
